FAERS Safety Report 14273831 (Version 2)
Quarter: 2018Q1

REPORT INFORMATION
  Report Type: Spontaneous
  Country: US (occurrence: US)
  Receive Date: 20171211
  Receipt Date: 20180103
  Transmission Date: 20180508
  Serious: No
  Sender: FDA-Public Use
  Company Number: US-B.I. PHARMACEUTICALS,INC./RIDGEFIELD-2017-BI-065124

PATIENT
  Age: 64 Year
  Sex: Female

DRUGS (1)
  1. COMBIVENT [Suspect]
     Active Substance: ALBUTEROL SULFATE\IPRATROPIUM BROMIDE
     Indication: CHRONIC OBSTRUCTIVE PULMONARY DISEASE
     Dosage: 1 PUFF 4-6 TIMES A DAY;  FORM STRENGTH: 20 MCG / 100 MCG;
     Route: 055
     Dates: start: 201711

REACTIONS (2)
  - Dyspnoea [Not Recovered/Not Resolved]
  - Dose calculation error [Unknown]

NARRATIVE: CASE EVENT DATE: 20171204
